FAERS Safety Report 5942809-9 (Version None)
Quarter: 2008Q4

REPORT INFORMATION
  Report Type: 
  Country: None (occurrence: None)
  Receive Date: 20081103
  Receipt Date: 20081024
  Transmission Date: 20090506
  Serious: Yes (Life-Threatening, Hospitalization)
  Sender: FDA-Public Use
  Company Number: WAES 0810USA04451

PATIENT
  Age: 61 Year
  Sex: Male
  Weight: 70.3075 kg

DRUGS (8)
  1. CAP VORINOSTAT 100 MG [Suspect]
     Indication: NEOPLASM
     Dosage: 100 MG,DAILY,PO
     Route: 048
     Dates: start: 20080915, end: 20080928
  2. TAXOTERE [Suspect]
     Indication: BLADDER CANCER
     Dosage: Q3W; IV
     Route: 042
     Dates: start: 20080918, end: 20081009
  3. COLACE [Concomitant]
  4. COMPAZINE [Concomitant]
  5. MEGACE [Concomitant]
  6. MS CONTIN [Concomitant]
  7. ZANTAC [Concomitant]
  8. THERAPY UNSPECIFIED [Concomitant]

REACTIONS (3)
  - HAEMOGLOBIN DECREASED [None]
  - LOWER GASTROINTESTINAL HAEMORRHAGE [None]
  - NEUTROPHIL COUNT DECREASED [None]
